FAERS Safety Report 5392043-9 (Version None)
Quarter: 2007Q3

REPORT INFORMATION
  Report Type: 
  Country: None (occurrence: None)
  Receive Date: 20070720
  Receipt Date: 20070710
  Transmission Date: 20080115
  Serious: Yes (Hospitalization)
  Sender: FDA-Public Use
  Company Number: SE-JNJFOC-20070702236

PATIENT
  Age: 87 Year
  Sex: Male

DRUGS (10)
  1. REMICADE [Suspect]
     Indication: RHEUMATOID ARTHRITIS
     Route: 042
  2. METHOTREXATE [Suspect]
     Indication: RHEUMATOID ARTHRITIS
     Route: 048
  3. METOPROLOL TARTRATE [Concomitant]
  4. CITALOPRAM HYDROBROMIDE [Concomitant]
  5. KALCIPOS-D [Concomitant]
  6. MIRTAZAPINE [Concomitant]
  7. FOLACIN [Concomitant]
  8. ACETAMINOPHEN [Concomitant]
  9. PREDNISOLONE [Concomitant]
  10. IMODIUM [Concomitant]

REACTIONS (4)
  - EPISTAXIS [None]
  - HAEMOPTYSIS [None]
  - PANCYTOPENIA [None]
  - PNEUMONIA [None]
